FAERS Safety Report 14384162 (Version 2)
Quarter: 2018Q1

REPORT INFORMATION
  Report Type: Spontaneous
  Country: US (occurrence: US)
  Receive Date: 20180115
  Receipt Date: 20180122
  Transmission Date: 20180509
  Serious: No
  Sender: FDA-Public Use
  Company Number: US-PFIZER INC-2018015396

PATIENT
  Age: 58 Year
  Sex: Female

DRUGS (1)
  1. LIPITOR [Suspect]
     Active Substance: ATORVASTATIN CALCIUM
     Dosage: 40 MG, UNK

REACTIONS (3)
  - Herpes zoster [Unknown]
  - Pain in extremity [Unknown]
  - Myalgia [Unknown]
